FAERS Safety Report 8329256-X (Version None)
Quarter: 2012Q2

REPORT INFORMATION
  Report Type: 
  Country: None (occurrence: None)
  Receive Date: 20120502
  Receipt Date: 20120110
  Transmission Date: 20120825
  Serious: No
  Sender: FDA-Public Use
  Company Number: US-ASTRAZENECA-2012SE02250

PATIENT
  Age: 80 Year
  Sex: Female

DRUGS (2)
  1. UNSPECIFIED ANTIBIOTIC [Suspect]
  2. FASLODEX [Suspect]
     Route: 030

REACTIONS (1)
  - GOUT [None]
